FAERS Safety Report 24104423 (Version 1)
Quarter: 2024Q3

REPORT INFORMATION
  Report Type: Spontaneous
  Country: US (occurrence: US)
  Receive Date: 20240717
  Receipt Date: 20240717
  Transmission Date: 20241017
  Serious: No
  Sender: PFIZER
  Company Number: US-PFIZER INC-PV202400092767

PATIENT
  Age: 57 Year
  Sex: Male

DRUGS (1)
  1. NURTEC ODT [Suspect]
     Active Substance: RIMEGEPANT SULFATE
     Indication: Migraine
     Dosage: 1 DF ON OR UNDER THE TONGUE, AS NEEDED. MAX 1 TABLET PER DAY
     Route: 048

REACTIONS (1)
  - Middle insomnia [Recovered/Resolved]
